FAERS Safety Report 14515446 (Version 2)
Quarter: 2018Q4

REPORT INFORMATION
  Report Type: Report from Study
  Country: US (occurrence: US)
  Receive Date: 20180210
  Receipt Date: 20181002
  Transmission Date: 20190204
  Serious: Yes (Hospitalization)
  Sender: FDA-Public Use
  Company Number: US-PUMA BIOTECHNOLOGY, LTD.-2017US014506

PATIENT

DRUGS (2)
  1. NERLYNX [Suspect]
     Active Substance: NERATINIB
     Dosage: UNK
     Route: 048
     Dates: start: 201809
  2. NERLYNX [Suspect]
     Active Substance: NERATINIB
     Indication: BREAST CANCER FEMALE
     Dosage: 240 MG (6 TABLETS), DAILY
     Route: 048
     Dates: start: 20171017, end: 2018

REACTIONS (10)
  - White blood cell count decreased [Unknown]
  - Decreased appetite [Recovering/Resolving]
  - Skin fissures [Unknown]
  - Onychoclasis [Unknown]
  - Hair growth rate abnormal [Unknown]
  - Nausea [Recovering/Resolving]
  - Onychalgia [Unknown]
  - Hospitalisation [Unknown]
  - Peripheral swelling [Unknown]
  - Diarrhoea [Recovering/Resolving]

NARRATIVE: CASE EVENT DATE: 2018
